FAERS Safety Report 7310633-0 (Version None)
Quarter: 2011Q1

REPORT INFORMATION
  Report Type: 
  Country: None (occurrence: None)
  Receive Date: 20110210
  Receipt Date: 20110202
  Transmission Date: 20110831
  Serious: Yes (Hospitalization)
  Sender: FDA-Public Use
  Company Number: 2011AC000009

PATIENT
  Age: 71 Year
  Sex: Male
  Weight: 127.0072 kg

DRUGS (5)
  1. DIGOXIN [Suspect]
     Indication: CARDIAC DISORDER
     Dosage: 1.25 MG, QD
     Dates: start: 20070701, end: 20080301
  2. ADVAIR DISKUS 100/50 [Concomitant]
  3. FUROSEMIDE [Concomitant]
  4. ALBUTEROL [Concomitant]
  5. POTASSIUM [Concomitant]

REACTIONS (4)
  - PALPITATIONS [None]
  - DYSPNOEA [None]
  - NAUSEA [None]
  - GYNAECOMASTIA [None]
